FAERS Safety Report 19176029 (Version 2)
Quarter: 2021Q2

REPORT INFORMATION
  Report Type: Spontaneous
  Country: DE (occurrence: DE)
  Receive Date: 20210424
  Receipt Date: 20210505
  Transmission Date: 20210717
  Serious: No
  Sender: FDA-Public Use
  Company Number: DE-LUPIN PHARMACEUTICALS INC.-2021-05049

PATIENT
  Age: 54 Year
  Sex: Male

DRUGS (4)
  1. TRIAMCINOLONE [Suspect]
     Active Substance: TRIAMCINOLONE
     Indication: ELEPHANTIASIS NOSTRAS VERRUCOSA
     Dosage: UNK UNK, BID
     Route: 061
  2. TRICLOSAN. [Suspect]
     Active Substance: TRICLOSAN
     Indication: ELEPHANTIASIS NOSTRAS VERRUCOSA
     Dosage: UNK UNK, BID
     Route: 061
  3. NEOTIGASON [Suspect]
     Active Substance: ACITRETIN
     Dosage: 10 MILLIGRAM EVERY 2 DAYS
     Route: 048
  4. NEOTIGASON [Suspect]
     Active Substance: ACITRETIN
     Indication: ELEPHANTIASIS NOSTRAS VERRUCOSA
     Dosage: 40 MILLIGRAM, QD
     Route: 048

REACTIONS (1)
  - Off label use [Unknown]
